FAERS Safety Report 7426766-4 (Version None)
Quarter: 2011Q2

REPORT INFORMATION
  Report Type: 
  Country: None (occurrence: None)
  Receive Date: 20110415
  Receipt Date: 20110415
  Transmission Date: 20111010
  Serious: No
  Sender: FDA-Public Use
  Company Number: None

PATIENT
  Sex: Female
  Weight: 72.5755 kg

DRUGS (1)
  1. SUMATRIPTAN -GENERIC SUMATRIPTAN [Suspect]
     Indication: MIGRAINE
     Dosage: SUMATRIPTAN 100MG TAB PO
     Route: 048
     Dates: start: 20100301

REACTIONS (2)
  - PALPITATIONS [None]
  - ARTHRALGIA [None]
